FAERS Safety Report 6847328-3 (Version None)
Quarter: 2010Q3

REPORT INFORMATION
  Report Type: 
  Country: None (occurrence: None)
  Receive Date: 20100716
  Receipt Date: 20100707
  Transmission Date: 20110219
  Serious: Yes (Other)
  Sender: FDA-Public Use
  Company Number: US-JNJFOC-20100405276

PATIENT
  Sex: Female
  Weight: 31.8 kg

DRUGS (6)
  1. REMICADE [Suspect]
     Indication: CROHN'S DISEASE
     Route: 042
  2. SULFASALAZINE [Concomitant]
     Indication: CROHN'S DISEASE
     Route: 065
  3. METHOTREXATE [Concomitant]
     Indication: CROHN'S DISEASE
     Route: 065
  4. FOLIC ACID [Concomitant]
     Indication: CROHN'S DISEASE
     Route: 065
  5. IRON POLYSACCHARIDE [Concomitant]
     Indication: CROHN'S DISEASE
     Route: 065
  6. PERIACTIN [Concomitant]
     Indication: DECREASED APPETITE
     Route: 065

REACTIONS (3)
  - DRUG INTOLERANCE [None]
  - JOINT TUBERCULOSIS [None]
  - TUBERCULOSIS OF CENTRAL NERVOUS SYSTEM [None]
